FAERS Safety Report 8438682-X (Version None)
Quarter: 2012Q2

REPORT INFORMATION
  Report Type: 
  Country: None (occurrence: None)
  Receive Date: 20120611
  Receipt Date: 20120611
  Transmission Date: 20120825
  Serious: Yes (Life-Threatening, Hospitalization)
  Sender: FDA-Public Use
  Company Number: None

PATIENT
  Age: 58 Year
  Sex: Female
  Weight: 107.0489 kg

DRUGS (3)
  1. PEGFILGRASTIM 6 MG AMGEN [Suspect]
     Indication: PROPHYLAXIS
     Dosage: 6 MG ONCE SQ
     Route: 058
     Dates: start: 20120514, end: 20120514
  2. ETOPOSIDE [Concomitant]
  3. CISPLATIN [Concomitant]

REACTIONS (3)
  - PRODUCT CONTAMINATION [None]
  - POOR QUALITY DRUG ADMINISTERED [None]
  - NEUTROPENIA [None]
